FAERS Safety Report 14731156 (Version 12)
Quarter: 2020Q1

REPORT INFORMATION
  Report Type: Spontaneous
  Country: AT (occurrence: AT)
  Receive Date: 20180406
  Receipt Date: 20200212
  Transmission Date: 20200409
  Serious: Yes (Death, Life-Threatening, Hospitalization)
  Sender: FDA-Public Use
  Company Number: AT-ABBVIE-18P-009-2311625-00

PATIENT
  Age: 71 Year
  Sex: Male

DRUGS (13)
  1. VENCLYXTO [Suspect]
     Active Substance: VENETOCLAX
     Route: 048
     Dates: start: 20180302, end: 20180302
  2. ALLOPURINOL. [Concomitant]
     Active Substance: ALLOPURINOL
     Indication: PROPHYLAXIS
  3. QUETIAPIN [Concomitant]
     Active Substance: QUETIAPINE
     Indication: SLEEP DISORDER
  4. VILANTEROL/UMECLIDINIUM [Concomitant]
     Indication: CHRONIC OBSTRUCTIVE PULMONARY DISEASE
  5. FUROSEMIDE W/SPIRONOLACTONE [Concomitant]
     Active Substance: FUROSEMIDE\SPIRONOLACTONE
     Indication: CARDIAC FAILURE
     Dosage: 20/50MG
     Route: 048
     Dates: start: 20180129
  6. IMBRUVICA [Suspect]
     Active Substance: IBRUTINIB
     Indication: CHRONIC LYMPHOCYTIC LEUKAEMIA
     Route: 048
     Dates: end: 20180122
  7. AMOXICILLINE AND CLAVULANIC ACID [Concomitant]
     Indication: INFECTION
     Dosage: 1000/200MG
     Route: 042
     Dates: start: 20180227, end: 20180303
  8. DESLORATADINE. [Concomitant]
     Active Substance: DESLORATADINE
     Indication: PRODUCT USED FOR UNKNOWN INDICATION
     Dates: start: 20180228
  9. BISOPROLOL [Concomitant]
     Active Substance: BISOPROLOL
     Indication: CARDIAC FAILURE
     Route: 048
  10. ALLOPURINOL. [Concomitant]
     Active Substance: ALLOPURINOL
     Indication: BLOOD URIC ACID DECREASED
     Dates: start: 20180222
  11. VENCLYXTO [Suspect]
     Active Substance: VENETOCLAX
     Indication: CHRONIC LYMPHOCYTIC LEUKAEMIA
     Route: 048
     Dates: start: 20180223, end: 20180301
  12. DIGITOXIN [Concomitant]
     Active Substance: DIGITOXIN
     Indication: ATRIAL FIBRILLATION
     Route: 048
     Dates: start: 20180129
  13. CANDESARTAN. [Concomitant]
     Active Substance: CANDESARTAN
     Indication: CARDIAC FAILURE
     Route: 048

REACTIONS (12)
  - Arrhythmia [Fatal]
  - Haemolytic anaemia [Fatal]
  - Pyrexia [Not Recovered/Not Resolved]
  - Sepsis [Fatal]
  - Multiple organ dysfunction syndrome [Fatal]
  - Tumour lysis syndrome [Fatal]
  - Autoimmune haemolytic anaemia [Fatal]
  - Arrhythmia [Unknown]
  - Oedema peripheral [Unknown]
  - Cardiogenic shock [Not Recovered/Not Resolved]
  - Systemic inflammatory response syndrome [Fatal]
  - Hyperkalaemia [Fatal]

NARRATIVE: CASE EVENT DATE: 201802
